FAERS Safety Report 7629790-1 (Version None)
Quarter: 2011Q3

REPORT INFORMATION
  Report Type: 
  Country: None (occurrence: None)
  Receive Date: 20110722
  Receipt Date: 20110719
  Transmission Date: 20111222
  Serious: Yes (Other)
  Sender: FDA-Public Use
  Company Number: US-PFIZER INC-2011163110

PATIENT
  Sex: Male
  Weight: 61.678 kg

DRUGS (1)
  1. CHANTIX [Suspect]
     Dosage: UNK
     Route: 048
     Dates: start: 20080801, end: 20080101

REACTIONS (3)
  - BACK DISORDER [None]
  - DEPRESSION [None]
  - NERVOUSNESS [None]
